FAERS Safety Report 9136744 (Version 1)
Quarter: 2013Q1

REPORT INFORMATION
  Report Type: Spontaneous
  Country: US (occurrence: US)
  Receive Date: 20130304
  Receipt Date: 20130304
  Transmission Date: 20140127
  Serious: No
  Sender: FDA-Public Use
  Company Number: US-ABBOTT-13P-163-1038545-00

PATIENT
  Sex: Female

DRUGS (3)
  1. ANDROGEL [Suspect]
     Indication: ACCIDENTAL EXPOSURE TO PRODUCT
  2. STATIN [Concomitant]
     Indication: BLOOD CHOLESTEROL INCREASED
  3. PRESCRIPTION FOR BLADDER [Concomitant]
     Indication: URINARY INCONTINENCE

REACTIONS (2)
  - Alopecia [Not Recovered/Not Resolved]
  - Accidental exposure to product [Not Recovered/Not Resolved]
